FAERS Safety Report 5631363-7 (Version None)
Quarter: 2008Q1

REPORT INFORMATION
  Report Type: 
  Country: None (occurrence: None)
  Receive Date: 20080212
  Receipt Date: 20080128
  Transmission Date: 20080703
  Serious: Yes (Hospitalization)
  Sender: FDA-Public Use
  Company Number: 2008S1000673

PATIENT
  Age: 51 Year
  Sex: Male
  Weight: 99.7913 kg

DRUGS (16)
  1. PHENYTOIN SODIUM [Suspect]
     Indication: CONVULSION
     Dosage: 600 MG; DAILY; ORAL; 1200 MG; X1; ORAL
     Route: 048
     Dates: start: 20080113, end: 20080113
  2. PHENYTOIN SODIUM [Suspect]
     Indication: CONVULSION
     Dosage: 600 MG; DAILY; ORAL; 1200 MG; X1; ORAL
     Route: 048
     Dates: start: 20050901
  3. IBUPROFEN [Suspect]
     Dosage: 400 MG; DAILY; ORAL
     Route: 048
     Dates: start: 20080101, end: 20080114
  4. OXYCODONE HCL [Concomitant]
  5. FEXOFENADONE [Concomitant]
  6. CYCLOBENZAPRINE HCL [Concomitant]
  7. MUCINEX [Concomitant]
  8. TYLENOL W/ CODEINE NO. 3 [Concomitant]
  9. ATORVASTATIN [Concomitant]
  10. CLARINEX /01398501/ [Concomitant]
  11. PANTOPRAZOLE [Concomitant]
  12. TIZANIDINE HCL [Concomitant]
  13. MULTIVITAMIN /00831701/ [Concomitant]
  14. NEURONTIN [Concomitant]
  15. CELEBREX [Concomitant]
  16. ALPRAZOLAM [Concomitant]

REACTIONS (5)
  - ANTICONVULSANT DRUG LEVEL BELOW THERAPEUTIC [None]
  - CONVULSION [None]
  - DRUG INTERACTION [None]
  - POSTICTAL PARALYSIS [None]
  - WEIGHT BEARING DIFFICULTY [None]
